FAERS Safety Report 9000557 (Version 1)
Quarter: 2013Q1

REPORT INFORMATION
  Report Type: Spontaneous
  Country: US (occurrence: None)
  Receive Date: 20130102
  Receipt Date: 20130102
  Transmission Date: 20140127
  Serious: No
  Sender: FDA-Public Use
  Company Number: None

PATIENT
  Age: 41 Year
  Sex: Male
  Weight: 134.8 kg

DRUGS (1)
  1. SERTRALINE [Suspect]
     Indication: POST-TRAUMATIC STRESS DISORDER
     Dates: start: 20120525, end: 20120906

REACTIONS (6)
  - Drug ineffective [None]
  - Flushing [None]
  - Dyspnoea [None]
  - Hyperhidrosis [None]
  - Dysphagia [None]
  - Oedema [None]
